FAERS Safety Report 18697586 (Version 1)
Quarter: 2021Q1

REPORT INFORMATION
  Report Type: Spontaneous
  Country: US (occurrence: US)
  Receive Date: 20210104
  Receipt Date: 20210104
  Transmission Date: 20210419
  Serious: Yes (Hospitalization)
  Sender: FDA-Public Use
  Company Number: US-MYLANLABS-2020M1106454

PATIENT
  Age: 27 Year
  Sex: Male

DRUGS (6)
  1. PLAVIX [Concomitant]
     Active Substance: CLOPIDOGREL BISULFATE
     Indication: CEREBROVASCULAR ACCIDENT
     Dosage: UNK
     Route: 065
  2. PREDNISONE. [Suspect]
     Active Substance: PREDNISONE
     Dosage: 4 MILLIGRAM, QD
     Route: 065
  3. CILOSTAZOL. [Concomitant]
     Active Substance: CILOSTAZOL
     Indication: CEREBROVASCULAR ACCIDENT
     Dosage: UNK
     Route: 065
  4. PREDNISONE. [Suspect]
     Active Substance: PREDNISONE
     Indication: IRITIS
     Dosage: 20 MILLIGRAM, QD
     Route: 065
  5. IBUPROFEN. [Concomitant]
     Active Substance: IBUPROFEN
     Indication: ANALGESIC INTERVENTION SUPPORTIVE THERAPY
     Dosage: UNK
     Route: 065
  6. TOCILIZUMAB. [Suspect]
     Active Substance: TOCILIZUMAB
     Indication: TAKAYASU^S ARTERITIS
     Dosage: 160 MILLIGRAM, QW
     Route: 042

REACTIONS (4)
  - Tachycardia [Recovering/Resolving]
  - Melaena [Recovering/Resolving]
  - Haematochezia [Recovering/Resolving]
  - Large intestinal ulcer [Recovering/Resolving]
